FAERS Safety Report 9474196 (Version 1)
Quarter: 2013Q3

REPORT INFORMATION
  Report Type: Spontaneous
  Country: US (occurrence: US)
  Receive Date: 20130823
  Receipt Date: 20130823
  Transmission Date: 20140515
  Serious: Yes (Other)
  Sender: FDA-Public Use
  Company Number: US-AMGEN-USASP2013059263

PATIENT
  Age: 63 Year
  Sex: Female

DRUGS (2)
  1. PROCRIT [Suspect]
     Indication: RED BLOOD CELL COUNT ABNORMAL
     Dosage: UNK UNK, QMO
     Route: 058
     Dates: start: 2013
  2. LIPITOR [Concomitant]
     Indication: CHEMOTHERAPY
     Dosage: UNK
     Dates: start: 2013, end: 201308

REACTIONS (7)
  - Dyspnoea [Not Recovered/Not Resolved]
  - Asthenia [Not Recovered/Not Resolved]
  - Decreased appetite [Not Recovered/Not Resolved]
  - Nervousness [Not Recovered/Not Resolved]
  - Insomnia [Not Recovered/Not Resolved]
  - Bone pain [Not Recovered/Not Resolved]
  - Cough [Not Recovered/Not Resolved]
